FAERS Safety Report 17012572 (Version 1)
Quarter: 2019Q4

REPORT INFORMATION
  Report Type: Spontaneous
  Country: US (occurrence: US)
  Receive Date: 20191109
  Receipt Date: 20191109
  Transmission Date: 20200122
  Serious: No
  Sender: FDA-Public Use
  Company Number: US-GLAXOSMITHKLINE-US2019AMR199145

PATIENT
  Sex: Female
  Weight: 81 kg

DRUGS (4)
  1. ZANTAC [Suspect]
     Active Substance: RANITIDINE HYDROCHLORIDE
     Indication: HIATUS HERNIA
     Dosage: UNK
     Dates: end: 201910
  2. PEPCID [Suspect]
     Active Substance: FAMOTIDINE
     Indication: HIATUS HERNIA
  3. ZANTAC [Suspect]
     Active Substance: RANITIDINE HYDROCHLORIDE
     Indication: GASTROOESOPHAGEAL REFLUX DISEASE
  4. PEPCID [Suspect]
     Active Substance: FAMOTIDINE
     Indication: GASTROOESOPHAGEAL REFLUX DISEASE
     Dosage: 2 EXTRA STRENGTH PER DAY BY MOUTH
     Route: 048

REACTIONS (4)
  - Asthenia [Unknown]
  - Blood iron decreased [Unknown]
  - Anaemia [Unknown]
  - Fatigue [Unknown]
